FAERS Safety Report 15505107 (Version 6)
Quarter: 2018Q4

REPORT INFORMATION
  Report Type: Spontaneous
  Country: NL (occurrence: NL)
  Receive Date: 20181016
  Receipt Date: 20181129
  Transmission Date: 20190205
  Serious: Yes (Hospitalization, Disabling, Other)
  Sender: FDA-Public Use
  Company Number: NL-AMGEN-NLDSP2018142823

PATIENT
  Age: 75 Year
  Sex: Female

DRUGS (19)
  1. ABATACEPT [Suspect]
     Active Substance: ABATACEPT
     Indication: RHEUMATOID ARTHRITIS
     Dosage: UNK
     Route: 065
     Dates: start: 2012, end: 2014
  2. CYCLOPHOSPHAMIDE. [Suspect]
     Active Substance: CYCLOPHOSPHAMIDE
     Indication: NON-HODGKIN^S LYMPHOMA
     Dosage: UNK
     Route: 065
     Dates: start: 2014
  3. METHOTREXATE. [Suspect]
     Active Substance: METHOTREXATE
     Indication: TENOSYNOVITIS
     Dosage: UNK
     Route: 065
     Dates: start: 2008
  4. METHOTREXATE. [Suspect]
     Active Substance: METHOTREXATE
     Dosage: UNK
     Route: 065
     Dates: start: 2015
  5. PREDNISONE. [Suspect]
     Active Substance: PREDNISONE
     Indication: ARTHRITIS
     Dosage: UNK
     Route: 065
     Dates: start: 2014
  6. PREDNISONE. [Suspect]
     Active Substance: PREDNISONE
     Indication: TENOSYNOVITIS
     Dosage: UNK
     Route: 065
     Dates: start: 2015
  7. VINCRISTINE [Suspect]
     Active Substance: VINCRISTINE
     Indication: NON-HODGKIN^S LYMPHOMA
     Dosage: UNK
     Route: 065
     Dates: start: 2014
  8. TOCILIZUMAB. [Suspect]
     Active Substance: TOCILIZUMAB
     Indication: TENOSYNOVITIS
     Dosage: UNK
     Route: 065
     Dates: start: 2012, end: 2016
  9. AMOXICILLIN/CLAVULANIC ACID [Concomitant]
     Active Substance: AMOXICILLIN\CLAVULANIC ACID
     Indication: ARTHRITIS
     Dosage: UNK
     Dates: start: 2014
  10. CERTOLIZUMAB [Suspect]
     Active Substance: CERTOLIZUMAB
     Indication: TENOSYNOVITIS
     Dosage: UNK
     Route: 065
     Dates: end: 2012
  11. RITUXIMAB. [Suspect]
     Active Substance: RITUXIMAB
     Indication: NON-HODGKIN^S LYMPHOMA
     Dosage: UNK
     Route: 065
     Dates: start: 2014
  12. KENACORT [Suspect]
     Active Substance: TRIAMCINOLONE
     Indication: TENOSYNOVITIS
     Dosage: UNK
     Route: 065
     Dates: start: 2008
  13. CLINDAMYCIN. [Concomitant]
     Active Substance: CLINDAMYCIN
     Indication: ARTHRITIS
     Dosage: UNK
     Dates: start: 2014
  14. ENBREL [Suspect]
     Active Substance: ETANERCEPT
     Indication: TENOSYNOVITIS
     Dosage: UNK
     Route: 065
     Dates: start: 2009
  15. PREDNISOLONE. [Suspect]
     Active Substance: PREDNISOLONE
     Indication: NON-HODGKIN^S LYMPHOMA
     Dosage: UNK
     Route: 065
     Dates: start: 2014
  16. ADALIMUMAB [Suspect]
     Active Substance: ADALIMUMAB
     Indication: TENOSYNOVITIS
     Dosage: UNK
     Route: 065
     Dates: start: 2012
  17. CLARITHROMYCIN. [Concomitant]
     Active Substance: CLARITHROMYCIN
     Indication: INFECTION
     Dosage: UNK
     Dates: start: 2012
  18. CLARITHROMYCIN. [Concomitant]
     Active Substance: CLARITHROMYCIN
     Indication: MYCOBACTERIUM MARINUM INFECTION
     Dosage: UNK
     Route: 065
  19. DOXORUBICIN [Suspect]
     Active Substance: DOXORUBICIN
     Indication: NON-HODGKIN^S LYMPHOMA
     Dosage: UNK
     Route: 065
     Dates: start: 2014

REACTIONS (2)
  - Condition aggravated [Recovered/Resolved]
  - Infective tenosynovitis [Recovered/Resolved]
